FAERS Safety Report 12124559 (Version 6)
Quarter: 2016Q3

REPORT INFORMATION
  Report Type: Report from Study
  Country: US (occurrence: US)
  Receive Date: 20160229
  Receipt Date: 20160909
  Transmission Date: 20161109
  Serious: Yes (Other)
  Sender: FDA-Public Use
  Company Number: US-JNJFOC-20160218508

PATIENT
  Age: 13 Year
  Sex: Male
  Weight: 56.6 kg

DRUGS (9)
  1. FOLIC ACID. [Concomitant]
     Active Substance: FOLIC ACID
     Route: 048
     Dates: start: 20150612
  2. NAPROXEN. [Concomitant]
     Active Substance: NAPROXEN
     Indication: JUVENILE IDIOPATHIC ARTHRITIS
     Dosage: START DATE; (} 6 MTHS PRIOR TO STUDY)
     Route: 048
     Dates: start: 20141002, end: 20160114
  3. METHOTREXATE. [Concomitant]
     Active Substance: METHOTREXATE
     Dosage: SCREENING MTX DOSE: 15 MG/WK
     Route: 065
  4. GOLIMUMAB [Suspect]
     Active Substance: GOLIMUMAB
     Indication: JUVENILE IDIOPATHIC ARTHRITIS
     Dosage: WEEK 4 INFUSION
     Route: 042
     Dates: start: 20151008
  5. METHOTREXATE. [Concomitant]
     Active Substance: METHOTREXATE
     Dosage: WEEK 0 MTX DOSE: 15 MG/WEEK
     Route: 065
  6. GOLIMUMAB [Suspect]
     Active Substance: GOLIMUMAB
     Indication: JUVENILE IDIOPATHIC ARTHRITIS
     Dosage: WEEK 12 INFUSION
     Route: 042
     Dates: start: 20151203
  7. METHOTREXATE. [Concomitant]
     Active Substance: METHOTREXATE
     Dosage: DOSE INCREASED TO 17.5 MG/WEEK AT WEEK 1
     Route: 065
  8. GOLIMUMAB [Suspect]
     Active Substance: GOLIMUMAB
     Indication: JUVENILE IDIOPATHIC ARTHRITIS
     Dosage: WEEK 0 INFUSION
     Route: 042
     Dates: start: 20150910
  9. GOLIMUMAB [Suspect]
     Active Substance: GOLIMUMAB
     Indication: JUVENILE IDIOPATHIC ARTHRITIS
     Dosage: WEEK 20 INFUSION
     Route: 042
     Dates: start: 20160204

REACTIONS (1)
  - Mycosis fungoides [Not Recovered/Not Resolved]

NARRATIVE: CASE EVENT DATE: 20160127
